FAERS Safety Report 11475715 (Version 1)
Quarter: 2015Q3

REPORT INFORMATION
  Report Type: Spontaneous
  Country: US (occurrence: US)
  Receive Date: 20150909
  Receipt Date: 20150909
  Transmission Date: 20151125
  Serious: Yes (Disabling, Other)
  Sender: FDA-Public Use
  Company Number: US-BRISTOL-MYERS SQUIBB COMPANY-BMS-2015-059421

PATIENT
  Sex: Male

DRUGS (1)
  1. ABILIFY [Suspect]
     Active Substance: ARIPIPRAZOLE
     Indication: SCHIZOPHRENIA, PARANOID TYPE
     Dosage: 20 MG, UNK
     Route: 065

REACTIONS (4)
  - Pain [Unknown]
  - Memory impairment [Unknown]
  - Feeling abnormal [Unknown]
  - Seizure [Unknown]
